FAERS Safety Report 13009787 (Version 1)
Quarter: 2016Q4

REPORT INFORMATION
  Report Type: Spontaneous
  Country: IN (occurrence: IN)
  Receive Date: 20161208
  Receipt Date: 20161208
  Transmission Date: 20170207
  Serious: Yes (Other)
  Sender: FDA-Public Use
  Company Number: IN-JNJFOC-20161206192

PATIENT
  Age: 24 Year
  Sex: Female

DRUGS (1)
  1. RISPERIDONE. [Suspect]
     Active Substance: RISPERIDONE
     Indication: SCHIZOPHRENIA
     Route: 065

REACTIONS (4)
  - Schizophrenia [Unknown]
  - Oligohydramnios [Unknown]
  - Exposure during pregnancy [Unknown]
  - Treatment noncompliance [Unknown]
